FAERS Safety Report 6814977-8 (Version None)
Quarter: 2010Q3

REPORT INFORMATION
  Report Type: 
  Country: None (occurrence: None)
  Receive Date: 20100701
  Receipt Date: 20100701
  Transmission Date: 20110219
  Serious: Yes (Life-Threatening, Other)
  Sender: FDA-Public Use
  Company Number: None

PATIENT
  Sex: Male
  Weight: 81.1939 kg

DRUGS (1)
  1. MORPHINE SULFATE [Suspect]
     Indication: PAIN
     Dosage: 200 MG 1 TAB @ 2 HRS
     Dates: start: 20090201, end: 20100622

REACTIONS (23)
  - ABDOMINAL DISCOMFORT [None]
  - CHANGE OF BOWEL HABIT [None]
  - CHOKING [None]
  - CLUMSINESS [None]
  - CONFUSIONAL STATE [None]
  - DISTURBANCE IN ATTENTION [None]
  - DIZZINESS [None]
  - DYSPHAGIA [None]
  - DYSURIA [None]
  - EMOTIONAL DISORDER [None]
  - FALL [None]
  - FEELING COLD [None]
  - HEADACHE [None]
  - HYPERHIDROSIS [None]
  - IMPAIRED DRIVING ABILITY [None]
  - INCOHERENT [None]
  - LIBIDO DECREASED [None]
  - MOOD SWINGS [None]
  - PALLOR [None]
  - PANIC ATTACK [None]
  - SOMNOLENCE [None]
  - VISION BLURRED [None]
  - VOMITING [None]
